FAERS Safety Report 19271192 (Version 2)
Quarter: 2021Q2

REPORT INFORMATION
  Report Type: Spontaneous
  Country: US (occurrence: US)
  Receive Date: 20210518
  Receipt Date: 20210521
  Transmission Date: 20210717
  Serious: Yes (Other)
  Sender: FDA-Public Use
  Company Number: US-GLAXOSMITHKLINE-US2021103253

PATIENT
  Age: 90 Year
  Sex: Female

DRUGS (1)
  1. FLUTICASONE PROPIONATE+SALMETEROL XINAFOATE [Suspect]
     Active Substance: FLUTICASONE PROPIONATE\SALMETEROL XINAFOATE
     Indication: ASTHMA
     Dosage: UNK
     Route: 055
     Dates: start: 20210507

REACTIONS (4)
  - Loss of consciousness [Recovered/Resolved]
  - Inappropriate schedule of product administration [Unknown]
  - Cardiovascular disorder [Unknown]
  - Product complaint [Unknown]

NARRATIVE: CASE EVENT DATE: 20210507
